FAERS Safety Report 15711132 (Version 4)
Quarter: 2019Q1

REPORT INFORMATION
  Report Type: Spontaneous
  Country: US (occurrence: US)
  Receive Date: 20181211
  Receipt Date: 20190110
  Transmission Date: 20190417
  Serious: Yes (Hospitalization)
  Sender: FDA-Public Use
  Company Number: US-ASTRAZENECA-2018SF59315

PATIENT
  Age: 27649 Day
  Sex: Male
  Weight: 70.3 kg

DRUGS (1)
  1. TUDORZA PRESSAIR [Suspect]
     Active Substance: ACLIDINIUM BROMIDE
     Indication: CHRONIC OBSTRUCTIVE PULMONARY DISEASE
     Dosage: 400 MCG 1 PUFF, TWICE A DAY
     Route: 055

REACTIONS (11)
  - Product dose omission [Not Recovered/Not Resolved]
  - Staphylococcal infection [Unknown]
  - Chronic obstructive pulmonary disease [Unknown]
  - Device malfunction [Not Recovered/Not Resolved]
  - Intentional device misuse [Not Recovered/Not Resolved]
  - Oxygen saturation decreased [Unknown]
  - Device failure [Unknown]
  - Pulmonary oedema [Unknown]
  - Pneumonia [Unknown]
  - Pulmonary congestion [Unknown]
  - Atrial fibrillation [Not Recovered/Not Resolved]

NARRATIVE: CASE EVENT DATE: 20181201
